FAERS Safety Report 14947732 (Version 1)
Quarter: 2018Q2

REPORT INFORMATION
  Report Type: Spontaneous
  Country: US (occurrence: US)
  Receive Date: 20180508
  Receipt Date: 20180508
  Transmission Date: 20180711
  Serious: Yes (Hospitalization)
  Sender: FDA-Public Use
  Company Number: None

PATIENT
  Age: 81 Year
  Sex: Male
  Weight: 93.3 kg

DRUGS (3)
  1. GEMCITABINE [Suspect]
     Active Substance: GEMCITABINE\GEMCITABINE HYDROCHLORIDE
     Indication: CHOLANGIOCARCINOMA
     Dates: start: 20171002
  2. CISPLATIN. [Suspect]
     Active Substance: CISPLATIN
  3. COPANLISIB. [Suspect]
     Active Substance: COPANLISIB

REACTIONS (1)
  - Fluid retention [None]

NARRATIVE: CASE EVENT DATE: 20180506
